FAERS Safety Report 5306836-7 (Version None)
Quarter: 2007Q2

REPORT INFORMATION
  Report Type: 
  Country: None (occurrence: None)
  Receive Date: 20070420
  Receipt Date: 20070420
  Transmission Date: 20071010
  Serious: Yes (Other)
  Sender: FDA-Public Use
  Company Number: None

PATIENT
  Sex: Female
  Weight: 66.6788 kg

DRUGS (8)
  1. HYDROXYCHLOROQUINE SULFATE [Suspect]
     Indication: SYSTEMIC LUPUS ERYTHEMATOSUS
     Dosage: 200MG 2 PO QD
     Route: 048
     Dates: start: 19960101, end: 20050101
  2. MOBIC [Concomitant]
  3. ACIPHEX [Concomitant]
  4. ULTRAM [Concomitant]
  5. TYLENOL [Concomitant]
  6. HORMONE REPLACEMENT [Concomitant]
  7. TUMS [Concomitant]
  8. MAALOX FAST BLOCKER [Concomitant]

REACTIONS (3)
  - HALO VISION [None]
  - NIGHT BLINDNESS [None]
  - SCOTOMA [None]
